FAERS Safety Report 8909845 (Version 1)
Quarter: 2012Q4

REPORT INFORMATION
  Report Type: Report from Study
  Country: CA (occurrence: CA)
  Receive Date: 20121115
  Receipt Date: 20121115
  Transmission Date: 20130627
  Serious: No
  Sender: FDA-Public Use
  Company Number: CA-JNJFOC-20121104719

PATIENT
  Age: 27 Year
  Sex: Female
  Weight: 54 kg

DRUGS (4)
  1. REMICADE [Suspect]
     Indication: CROHN^S DISEASE
     Route: 042
     Dates: start: 201103
  2. VALACYCLOVIR [Concomitant]
     Route: 065
  3. IMURAN [Concomitant]
     Route: 065
  4. ORAL CONTRACEPTIVE [Concomitant]
     Route: 065

REACTIONS (1)
  - Herpes zoster [Recovered/Resolved]
